FAERS Safety Report 10239778 (Version 1)
Quarter: 2014Q2

REPORT INFORMATION
  Report Type: Spontaneous
  Country: IT (occurrence: FR)
  Receive Date: 20140616
  Receipt Date: 20140616
  Transmission Date: 20141212
  Serious: Yes (Hospitalization)
  Sender: FDA-Public Use
  Company Number: FR-FRI-1000068156

PATIENT
  Age: 79 Year
  Sex: Female

DRUGS (11)
  1. NEBIVOLOL [Suspect]
     Route: 048
     Dates: start: 2011, end: 201303
  2. NEBIVOLOL [Suspect]
     Route: 048
     Dates: start: 20130326, end: 201402
  3. TEMERITDUO [Suspect]
     Route: 048
     Dates: start: 201303, end: 20130326
  4. TEMERITDUO [Suspect]
     Route: 048
     Dates: start: 2013, end: 201402
  5. SUTENT [Suspect]
     Indication: RENAL CANCER
     Dosage: 37.5 MG
     Route: 048
     Dates: start: 201301, end: 201312
  6. SUTENT [Suspect]
     Indication: RENAL CANCER
     Dosage: 37.5 MG
     Dates: start: 201401, end: 201402
  7. KARDEGIC [Concomitant]
     Route: 048
  8. AMLOR [Concomitant]
     Route: 048
  9. HYPERIUM [Concomitant]
     Route: 048
  10. MOPRAL [Concomitant]
     Route: 048
  11. LEVOTHYROX [Concomitant]
     Route: 048
     Dates: start: 201302

REACTIONS (1)
  - Hyponatraemia [Recovered/Resolved]
